FAERS Safety Report 6969578-8 (Version None)
Quarter: 2010Q3

REPORT INFORMATION
  Report Type: 
  Country: None (occurrence: None)
  Receive Date: 20100907
  Receipt Date: 20100907
  Transmission Date: 20110219
  Serious: Yes (Other)
  Sender: FDA-Public Use
  Company Number: None

PATIENT

DRUGS (1)
  1. ALL CIGERATTES [Suspect]

REACTIONS (2)
  - COUGH [None]
  - PRODUCT QUALITY ISSUE [None]
